FAERS Safety Report 15261891 (Version 2)
Quarter: 2019Q3

REPORT INFORMATION
  Report Type: Report from Study
  Country: US (occurrence: US)
  Receive Date: 20180809
  Receipt Date: 20190814
  Transmission Date: 20191004
  Serious: No
  Sender: FDA-Public Use
  Company Number: US-AEGERION PHARMACEUTICAL, INC-AEGR003829

PATIENT
  Sex: Male
  Weight: 24.94 kg

DRUGS (2)
  1. JUXTAPID [Suspect]
     Active Substance: LOMITAPIDE MESYLATE
     Indication: TYPE IIA HYPERLIPIDAEMIA
     Dosage: 5 MG, QD, MWF
     Route: 048
     Dates: start: 20171115
  2. JUXTAPID [Suspect]
     Active Substance: LOMITAPIDE MESYLATE
     Dosage: 10 MG, QD, TTS
     Route: 048

REACTIONS (8)
  - Product dose omission [Unknown]
  - Product administered to patient of inappropriate age [Unknown]
  - Weight decreased [Unknown]
  - Malaise [Unknown]
  - Gastroenteritis viral [Recovered/Resolved]
  - Diarrhoea [Unknown]
  - Vomiting [Unknown]
  - Intentional product misuse [Unknown]
